FAERS Safety Report 9420901 (Version 1)
Quarter: 2013Q3

REPORT INFORMATION
  Report Type: Spontaneous
  Country: US (occurrence: US)
  Receive Date: 20130725
  Receipt Date: 20130725
  Transmission Date: 20140515
  Serious: No
  Sender: FDA-Public Use
  Company Number: US-ABBOTT-13P-163-1105800-00

PATIENT
  Sex: Female
  Weight: 59.93 kg

DRUGS (6)
  1. SYNTHROID [Suspect]
     Indication: AUTOIMMUNE THYROIDITIS
     Dosage: 88MCG DAILY
     Dates: start: 201305
  2. LEVOTHYROXINE [Suspect]
     Indication: AUTOIMMUNE THYROIDITIS
     Dosage: 88MCG DAILY
     Dates: start: 2013, end: 2013
  3. PENICILLIN NOS [Suspect]
     Indication: PRODUCT USED FOR UNKNOWN INDICATION
  4. LIPITOR [Concomitant]
     Indication: CARDIAC DISORDER
     Dosage: 80 MG DAILY
  5. ASPIRIN [Concomitant]
     Indication: CARDIAC DISORDER
     Dosage: 81 MG DAILY
  6. FUROSEMIDE [Concomitant]
     Indication: CARDIAC DISORDER
     Dosage: 20 MG DAILY

REACTIONS (5)
  - Drug hypersensitivity [Unknown]
  - Acne [Unknown]
  - Dyspnoea [Unknown]
  - Rash [Unknown]
  - Pruritus [Unknown]
